FAERS Safety Report 15145231 (Version 2)
Quarter: 2018Q3

REPORT INFORMATION
  Report Type: Other
  Country: US (occurrence: US)
  Receive Date: 20180713
  Receipt Date: 20180720
  Transmission Date: 20181010
  Serious: Yes (Hospitalization)
  Sender: FDA-Public Use
  Company Number: US-INTERCEPT-PMOCA2018000581

PATIENT

DRUGS (2)
  1. URSODIOL. [Concomitant]
     Active Substance: URSODIOL
  2. OCALIVA [Suspect]
     Active Substance: OBETICHOLIC ACID
     Indication: PRIMARY BILIARY CHOLANGITIS
     Dosage: 2.5 MG, 2X/WK
     Route: 048
     Dates: start: 201801, end: 201802

REACTIONS (4)
  - Disease progression [Unknown]
  - Therapy non-responder [Unknown]
  - Hepatic failure [Unknown]
  - Hernia [Unknown]
